FAERS Safety Report 9531393 (Version 2)
Quarter: 2013Q3

REPORT INFORMATION
  Report Type: Spontaneous
  Country: TN (occurrence: None)
  Receive Date: 20130916
  Receipt Date: 20130930
  Transmission Date: 20140515
  Serious: Yes (Other)
  Sender: FDA-Public Use
  Company Number: 2013TN0357

PATIENT
  Sex: Male

DRUGS (1)
  1. NITISINONE [Suspect]
     Indication: TYROSINAEMIA

REACTIONS (9)
  - Acrodermatitis enteropathica [None]
  - Autism [None]
  - Hypothyroidism [None]
  - Overweight [None]
  - Malnutrition [None]
  - Amino acid level increased [None]
  - Zinc deficiency [None]
  - Amino acid level increased [None]
  - Amino acid level increased [None]
